FAERS Safety Report 21605699 (Version 2)
Quarter: 2022Q4

REPORT INFORMATION
  Report Type: Spontaneous
  Country: ES (occurrence: ES)
  Receive Date: 20221116
  Receipt Date: 20221123
  Transmission Date: 20230112
  Serious: Yes (Hospitalization)
  Sender: FDA-Public Use
  Company Number: ES-BEIGENE USA INC-BGN-2022-010752

PATIENT

DRUGS (1)
  1. BRUKINSA [Suspect]
     Active Substance: ZANUBRUTINIB
     Indication: Waldenstrom^s macroglobulinaemia
     Dosage: 320 MILLIGRAM
     Route: 048
     Dates: start: 20221007, end: 20221024

REACTIONS (1)
  - Herpes zoster reactivation [Recovered/Resolved]

NARRATIVE: CASE EVENT DATE: 20221020
